FAERS Safety Report 7286498-2 (Version None)
Quarter: 2011Q1

REPORT INFORMATION
  Report Type: 
  Country: None (occurrence: None)
  Receive Date: 20110210
  Receipt Date: 20110203
  Transmission Date: 20110831
  Serious: Yes (Death, Hospitalization)
  Sender: FDA-Public Use
  Company Number: IL-ROCHE-750634

PATIENT
  Age: 72 Year
  Sex: Male
  Weight: 76 kg

DRUGS (3)
  1. BLINDED BEVACIZUMAB [Suspect]
     Indication: GLIOBLASTOMA MULTIFORME
     Dosage: FREQ: OVER 30-90 MIN  LAST DOSE PROR TO SAE: 28 NOVEMBER 2010
     Route: 042
     Dates: start: 20101107
  2. TEMOZOLOMIDE [Suspect]
     Indication: GLIOBLASTOMA MULTIFORME
     Dosage: TOTAL DOSE 5020 MG.
     Route: 048
     Dates: start: 20101107, end: 20101213
  3. BLINDED BEVACIZUMAB [Suspect]
     Dosage: SECOND INFUSION
     Route: 042
     Dates: start: 20101215

REACTIONS (2)
  - SEPSIS [None]
  - CONVULSION [None]
